FAERS Safety Report 7997469-2 (Version None)
Quarter: 2011Q4

REPORT INFORMATION
  Report Type: 
  Country: None (occurrence: None)
  Receive Date: 20111221
  Receipt Date: 20111221
  Transmission Date: 20120403
  Serious: Yes (Hospitalization)
  Sender: FDA-Public Use
  Company Number: None

PATIENT
  Age: 82 Year
  Sex: Female
  Weight: 51 kg

DRUGS (13)
  1. MULTI-VITAMIN [Concomitant]
     Route: 048
  2. VITAMIN D [Concomitant]
     Route: 048
  3. WARFARIN SODIUM [Concomitant]
     Route: 048
  4. WARFARIN SODIUM [Concomitant]
     Route: 048
  5. FERROUS SULFATE TAB [Concomitant]
     Route: 048
  6. LOSARTAN POTASSIUM [Concomitant]
     Route: 048
  7. SIMVASTATIN [Concomitant]
     Route: 048
  8. ALENDRONATE SODIUM [Suspect]
     Indication: OSTEOPOROSIS
     Dosage: 70 MG
     Route: 048
  9. BUSPIRONE HCL [Concomitant]
     Route: 048
  10. METOPROLOL TARTRATE [Concomitant]
     Route: 048
  11. CLONAZEPAM [Concomitant]
     Route: 048
  12. ASPIRIN [Concomitant]
     Route: 048
  13. TRAZODONE HCL [Concomitant]
     Route: 048

REACTIONS (3)
  - TOOTH EXTRACTION [None]
  - POOR PERSONAL HYGIENE [None]
  - OSTEOMYELITIS [None]
